FAERS Safety Report 9955672 (Version 2)
Quarter: 2014Q1

REPORT INFORMATION
  Report Type: Spontaneous
  Country: US (occurrence: US)
  Receive Date: 20140304
  Receipt Date: 20140304
  Transmission Date: 20141002
  Serious: No
  Sender: FDA-Public Use
  Company Number: US-ABBVIE-13P-163-1039025-00

PATIENT
  Age: 39 Year
  Sex: Female

DRUGS (9)
  1. HUMIRA [Suspect]
     Indication: CROHN^S DISEASE
     Dates: start: 20121207
  2. ASACOL [Concomitant]
     Indication: CROHN^S DISEASE
     Dosage: 2400MG AM, 2400MG EVE
  3. ENTOCORT [Concomitant]
     Indication: PRODUCT USED FOR UNKNOWN INDICATION
     Dosage: 9MG DAILY
  4. ENTOCORT [Concomitant]
  5. ZOFRAN [Concomitant]
     Indication: NAUSEA
     Route: 048
  6. ULTRAM [Concomitant]
     Indication: HEADACHE
     Route: 048
  7. ULTRAM [Concomitant]
     Indication: ARTHRALGIA
  8. TYLENOL [Concomitant]
     Indication: HEADACHE
     Route: 048
  9. TYLENOL [Concomitant]
     Indication: ARTHRALGIA

REACTIONS (4)
  - Fatigue [Recovered/Resolved]
  - Rash pruritic [Recovered/Resolved]
  - Rash [Recovered/Resolved]
  - Rash [Not Recovered/Not Resolved]
